FAERS Safety Report 9126134 (Version 1)
Quarter: 2013Q1

REPORT INFORMATION
  Report Type: Spontaneous
  Country: US (occurrence: US)
  Receive Date: 20130117
  Receipt Date: 20130117
  Transmission Date: 20140127
  Serious: Yes (Hospitalization)
  Sender: FDA-Public Use
  Company Number: US-GLAXOSMITHKLINE-A0849303A

PATIENT
  Age: 43 Year
  Sex: Female
  Weight: 193.2 kg

DRUGS (1)
  1. AVANDIA [Suspect]
     Indication: DIABETES MELLITUS
     Dosage: 8MG PER DAY
     Route: 048
     Dates: end: 20090526

REACTIONS (3)
  - Cardiac failure congestive [Recovering/Resolving]
  - Chronic obstructive pulmonary disease [Unknown]
  - Depression [Unknown]
